FAERS Safety Report 7581077-1 (Version None)
Quarter: 2011Q3

REPORT INFORMATION
  Report Type: 
  Country: None (occurrence: None)
  Receive Date: 20110629
  Receipt Date: 20110622
  Transmission Date: 20111222
  Serious: Yes (Hospitalization, Congenital Anomaly, Other)
  Sender: FDA-Public Use
  Company Number: GXKR2011DE02110

PATIENT
  Sex: Female
  Weight: 4.32 kg

DRUGS (3)
  1. AMITRIPTYLINE HCL [Suspect]
     Dosage: MATERNAL DOSE: GW0-5: 100MG/DAY; GW5-6: 75 MG/DAY; GW6-39: 50 MG/DAY
     Route: 064
  2. LEVOTHYROXINE SODIUM [Concomitant]
     Indication: AUTOIMMUNE THYROIDITIS
     Dosage: MATERNAL DOSE: 150 UG/DAY
     Route: 064
  3. FOLIC ACID [Concomitant]
     Dosage: MATERNAL DOSE: 0.4 MG/DAY
     Route: 064

REACTIONS (8)
  - RENAL HYPOPLASIA [None]
  - URETHRAL STENOSIS [None]
  - NEONATAL RESPIRATORY DEPRESSION [None]
  - PYELOCALIECTASIS [None]
  - LARGE FOR DATES BABY [None]
  - MATERNAL EXPOSURE DURING PREGNANCY [None]
  - HYPERBILIRUBINAEMIA NEONATAL [None]
  - HIP DYSPLASIA [None]
